FAERS Safety Report 5638856-7 (Version None)
Quarter: 2008Q1

REPORT INFORMATION
  Report Type: 
  Country: None (occurrence: None)
  Receive Date: 20080226
  Receipt Date: 20080213
  Transmission Date: 20080703
  Serious: Yes (Hospitalization)
  Sender: FDA-Public Use
  Company Number: PHBS2008US02245

PATIENT
  Age: 21 Year
  Sex: Female

DRUGS (4)
  1. CYCLOSPORINE [Suspect]
     Indication: STEM CELL TRANSPLANT
     Route: 048
  2. MYCOPHENOLATE MOFETIL [Suspect]
     Indication: STEM CELL TRANSPLANT
     Route: 065
  3. FLUDARABINE [Concomitant]
     Indication: STEM CELL TRANSPLANT
     Dosage: 30 MG/M2/DAY
  4. BUSULFAN [Concomitant]
     Indication: STEM CELL TRANSPLANT
     Dosage: 3.2 MG/KG/DAY
     Route: 042

REACTIONS (24)
  - BACTERIAL INFECTION [None]
  - CHAPPED LIPS [None]
  - CONJUNCTIVITIS [None]
  - DEHYDRATION [None]
  - DRY EYE [None]
  - GENITAL EROSION [None]
  - HAEMATURIA [None]
  - LIP DRY [None]
  - LIP HAEMORRHAGE [None]
  - LIP SWELLING [None]
  - MALAISE [None]
  - MUCOSA VESICLE [None]
  - MYALGIA [None]
  - MYCOPLASMA INFECTION [None]
  - MYCOPLASMA SEROLOGY POSITIVE [None]
  - OCCULT BLOOD POSITIVE [None]
  - PHARYNGOLARYNGEAL PAIN [None]
  - PYREXIA [None]
  - STEVENS-JOHNSON SYNDROME [None]
  - STOMATITIS [None]
  - TONGUE DISCOLOURATION [None]
  - TONSILLAR DISORDER [None]
  - TONSILLAR INFLAMMATION [None]
  - VAGINAL INFLAMMATION [None]
